FAERS Safety Report 25227673 (Version 1)
Quarter: 2025Q2

REPORT INFORMATION
  Report Type: Spontaneous
  Country: US (occurrence: MX)
  Receive Date: 20250422
  Receipt Date: 20250422
  Transmission Date: 20250717
  Serious: Yes (Hospitalization)
  Sender: BRISTOL-MYERS SQUIBB COMPANY
  Company Number: US-BRISTOL-MYERS SQUIBB COMPANY-2025-056784

PATIENT
  Age: 77 Year
  Sex: Male
  Weight: 57.15 kg

DRUGS (9)
  1. REVLIMID [Suspect]
     Active Substance: LENALIDOMIDE
     Indication: Plasma cell myeloma
     Dosage: 3 WEEKS ON 1 WEEK OFF
     Route: 048
  2. CYCLOBENZAPRINE [Concomitant]
     Active Substance: CYCLOBENZAPRINE
  3. DEXAMETHASONE [Concomitant]
     Active Substance: DEXAMETHASONE
  4. LISINOPRIL [Concomitant]
     Active Substance: LISINOPRIL
  5. METFORMIN HYDROCHLORIDE [Concomitant]
     Active Substance: METFORMIN HYDROCHLORIDE
  6. PREDNISONE [Concomitant]
     Active Substance: PREDNISONE
  7. TRAMADOL [Concomitant]
     Active Substance: TRAMADOL
  8. ASPIRIN [Concomitant]
     Active Substance: ASPIRIN
  9. XGEVA [Concomitant]
     Active Substance: DENOSUMAB

REACTIONS (1)
  - Hospitalisation [Recovered/Resolved]
